FAERS Safety Report 15563050 (Version 1)
Quarter: 2018Q4

REPORT INFORMATION
  Report Type: Spontaneous
  Country: IT (occurrence: IT)
  Receive Date: 20181029
  Receipt Date: 20181029
  Transmission Date: 20190205
  Serious: Yes (Hospitalization, Other)
  Sender: FDA-Public Use
  Company Number: IT-SA-2018SA290374

PATIENT
  Age: 69 Year
  Sex: Male

DRUGS (1)
  1. BCG FOR IMMUNOTHERAPY [Suspect]
     Active Substance: BACILLUS CALMETTE-GUERIN ANTIGEN, UNSPECIFIED SUBSTRAIN
     Indication: TRANSITIONAL CELL CARCINOMA
     Dosage: UNK UNK, UNK
     Route: 043

REACTIONS (12)
  - Tuberculosis [Unknown]
  - Malaise [Unknown]
  - Muscle contracture [Unknown]
  - Asthenia [Unknown]
  - Areflexia [Unknown]
  - Vascular pseudoaneurysm [Recovered/Resolved]
  - Haematuria [Unknown]
  - Gait inability [Not Recovered/Not Resolved]
  - Pyrexia [Unknown]
  - Monoparesis [Unknown]
  - Back pain [Unknown]
  - Paralysis [Unknown]
